FAERS Safety Report 25519558 (Version 2)
Quarter: 2025Q3

REPORT INFORMATION
  Report Type: Spontaneous
  Country: JP (occurrence: JP)
  Receive Date: 20250704
  Receipt Date: 20250812
  Transmission Date: 20251021
  Serious: Yes (Other)
  Sender: KYOWA
  Company Number: JP-KYOWAKIRIN-2025KK012996

PATIENT

DRUGS (1)
  1. CRYSVITA [Suspect]
     Active Substance: BUROSUMAB-TWZA
     Indication: Hereditary hypophosphataemic rickets
     Dosage: 60 MG, 1X/MONTH, 2 VIALS OF CRYSVITA SUBCUTANEOUS INJECTION 30 MG
     Route: 058
     Dates: start: 202403

REACTIONS (1)
  - Pancreatolithiasis [Unknown]
